FAERS Safety Report 9312333 (Version 2)
Quarter: 2013Q2

REPORT INFORMATION
  Report Type: Report from Study
  Country: JP (occurrence: JP)
  Receive Date: 20130528
  Receipt Date: 20130621
  Transmission Date: 20140414
  Serious: Yes (Death)
  Sender: FDA-Public Use
  Company Number: JP-GILEAD-2013-0075568

PATIENT
  Age: 49 Year
  Sex: Male

DRUGS (11)
  1. AMBRISENTAN [Suspect]
     Indication: PULMONARY ARTERIAL HYPERTENSION
     Dosage: 2.5MG TWICE PER DAY
     Route: 048
     Dates: start: 20110525
  2. ADCIRCA [Suspect]
     Indication: PULMONARY ARTERIAL HYPERTENSION
     Route: 048
     Dates: end: 201112
  3. CARELOAD [Suspect]
     Indication: PULMONARY ARTERIAL HYPERTENSION
     Route: 048
     Dates: end: 20110526
  4. BERAPROST [Concomitant]
     Indication: PULMONARY ARTERIAL HYPERTENSION
     Route: 048
     Dates: end: 20110526
  5. LUPRAC [Concomitant]
     Indication: POLYURIA
     Route: 048
     Dates: end: 201112
  6. LAC-B [Concomitant]
     Route: 048
     Dates: end: 201112
  7. REBAMIPIDE [Concomitant]
     Route: 048
     Dates: end: 201112
  8. ACTOS [Concomitant]
     Route: 048
     Dates: end: 201112
  9. CODEINE PHOSPHATE [Concomitant]
     Route: 048
     Dates: end: 201112
  10. TANNALBIN [Concomitant]
     Route: 048
     Dates: end: 201112
  11. LOPEMIN                            /00384302/ [Concomitant]
     Route: 048
     Dates: end: 201112

REACTIONS (4)
  - Hepatic cirrhosis [Fatal]
  - Epistaxis [Recovered/Resolved]
  - Oedema peripheral [Recovering/Resolving]
  - Blood creatinine increased [Unknown]
